FAERS Safety Report 24770765 (Version 1)
Quarter: 2024Q4

REPORT INFORMATION
  Report Type: Spontaneous
  Country: FR (occurrence: FR)
  Receive Date: 20241224
  Receipt Date: 20241224
  Transmission Date: 20250115
  Serious: Yes (Hospitalization, Other)
  Sender: ACCORD
  Company Number: FR-Accord-460268

PATIENT
  Age: 71 Year
  Sex: Female

DRUGS (1)
  1. CISPLATIN [Suspect]
     Active Substance: CISPLATIN
     Indication: Ear, nose and throat disorder
     Route: 042

REACTIONS (8)
  - Neutropenia [Unknown]
  - Cardiopulmonary failure [Unknown]
  - Pyrexia [Unknown]
  - Dehydration [Unknown]
  - Dyspnoea [Unknown]
  - Palpitations [Unknown]
  - Nausea [Unknown]
  - Moaning [Unknown]

NARRATIVE: CASE EVENT DATE: 20241113
